FAERS Safety Report 25726876 (Version 1)
Quarter: 2025Q3

REPORT INFORMATION
  Report Type: Spontaneous
  Country: BR (occurrence: BR)
  Receive Date: 20250826
  Receipt Date: 20250826
  Transmission Date: 20251020
  Serious: Yes (Death, Other)
  Sender: BAYER HEALTHCARE PHARMACEUTICALS INC.
  Company Number: BR-BAYER-2025A112298

PATIENT
  Age: 22 Year
  Sex: Female
  Weight: 58 kg

DRUGS (2)
  1. ULTRAVIST [Suspect]
     Active Substance: IOPROMIDE
     Indication: Computerised tomogram
     Route: 042
     Dates: start: 20250819, end: 20250819
  2. NITROFURANTOIN [Concomitant]
     Active Substance: NITROFURANTOIN

REACTIONS (5)
  - Urticaria [None]
  - Laryngeal oedema [None]
  - Respiratory failure [None]
  - Cardio-respiratory arrest [None]
  - Shock [Fatal]

NARRATIVE: CASE EVENT DATE: 20250819
